FAERS Safety Report 6030483-5 (Version None)
Quarter: 2009Q1

REPORT INFORMATION
  Report Type: 
  Country: None (occurrence: None)
  Receive Date: 20090106
  Receipt Date: 20090106
  Transmission Date: 20090719
  Serious: Yes (Hospitalization, Other)
  Sender: FDA-Public Use
  Company Number: None

PATIENT
  Age: 17 Year
  Sex: Female
  Weight: 58.0604 kg

DRUGS (1)
  1. MIRENA [Suspect]
     Indication: CONTRACEPTION
     Dosage: ONCE EVERY 5 YEARS INTRA-UTERINE
     Route: 015
     Dates: start: 20081016, end: 20081231

REACTIONS (4)
  - CONTRACEPTIVE DEVICE COMPLICATION [None]
  - MENORRHAGIA [None]
  - MUSCLE SPASMS [None]
  - PAIN [None]
